FAERS Safety Report 4569349-6 (Version None)
Quarter: 2005Q1

REPORT INFORMATION
  Report Type: 
  Country: None (occurrence: None)
  Receive Date: 20050203
  Receipt Date: 20050131
  Transmission Date: 20050727
  Serious: Yes (Death, Hospitalization)
  Sender: FDA-Public Use
  Company Number: FR-GLAXOSMITHKLINE-B0369409A

PATIENT
  Age: 70 Year
  Sex: Female

DRUGS (2)
  1. AUGMENTIN [Suspect]
     Route: 048
     Dates: start: 20040609, end: 20040619
  2. SINTROM [Concomitant]
     Route: 048
     Dates: end: 20040629

REACTIONS (5)
  - ABDOMINAL PAIN [None]
  - CLOSTRIDIUM COLITIS [None]
  - COLITIS [None]
  - DIARRHOEA [None]
  - INFLAMMATION [None]
